FAERS Safety Report 14519301 (Version 2)
Quarter: 2018Q1

REPORT INFORMATION
  Report Type: Spontaneous
  Country: US (occurrence: US)
  Receive Date: 20180212
  Receipt Date: 20180213
  Transmission Date: 20180509
  Serious: Yes (Other)
  Sender: FDA-Public Use
  Company Number: US-PFIZER INC-2018056881

PATIENT
  Age: 34 Year
  Sex: Female
  Weight: 115.6 kg

DRUGS (1)
  1. CELONTIN [Suspect]
     Active Substance: METHSUXIMIDE
     Indication: SEIZURE
     Dosage: 600 MG, 2X/DAY(2 CAPSULES TWICE A DAY)
     Route: 048

REACTIONS (1)
  - Generalised tonic-clonic seizure [Unknown]
